FAERS Safety Report 6116900-0 (Version None)
Quarter: 2009Q1

REPORT INFORMATION
  Report Type: 
  Country: None (occurrence: None)
  Receive Date: 20090314
  Receipt Date: 20090106
  Transmission Date: 20090719
  Serious: No
  Sender: FDA-Public Use
  Company Number: US-ABBOTT-08P-163-0495420-00

PATIENT
  Sex: Male
  Weight: 118.04 kg

DRUGS (10)
  1. HUMIRA [Suspect]
     Indication: CROHN'S DISEASE
     Dates: start: 20080630
  2. HUMIRA [Suspect]
  3. LISINOPRIL [Concomitant]
     Indication: HYPERTENSION
  4. TOPROL-XL [Concomitant]
     Indication: HYPERTENSION
  5. DYAZIDE [Concomitant]
     Indication: HYPERTENSION
     Dosage: FORM: 37.5/2.5 MILLIGRAMS
  6. PROTONIX [Concomitant]
     Indication: GASTROOESOPHAGEAL REFLUX DISEASE
  7. OMEPRAZOLE [Concomitant]
     Indication: GASTROOESOPHAGEAL REFLUX DISEASE
  8. HYOMAX [Concomitant]
     Indication: CROHN'S DISEASE
  9. SERTRALINE [Concomitant]
     Indication: DEPRESSION
     Dosage: 1 1/2 - 50 MILLIGRAM TABLET ONCE DAILY
  10. CHOLESTYRAMINE [Concomitant]
     Indication: DRUG USE FOR UNKNOWN INDICATION
     Dosage: FORM: 1/2 PACKET AS REQUIRED FOR LIVER BILE

REACTIONS (3)
  - INJECTION SITE ERYTHEMA [None]
  - INJECTION SITE SWELLING [None]
  - INJECTION SITE VESICLES [None]
